FAERS Safety Report 21798184 (Version 1)
Quarter: 2022Q4

REPORT INFORMATION
  Report Type: Spontaneous
  Country: FR (occurrence: FR)
  Receive Date: 20221230
  Receipt Date: 20221230
  Transmission Date: 20230113
  Serious: Yes (Other)
  Sender: FDA-Public Use
  Company Number: None

PATIENT
  Age: 60 Year
  Sex: Female

DRUGS (5)
  1. GEMCITABINE HYDROCHLORIDE [Suspect]
     Active Substance: GEMCITABINE HYDROCHLORIDE
     Indication: Metastatic squamous cell carcinoma
     Dosage: 1 DF, CYCLIC (1500 MG OR 1200 MG / CYCLE)
     Route: 042
     Dates: start: 20220825
  2. SERTRALINE HYDROCHLORIDE [Concomitant]
     Active Substance: SERTRALINE HYDROCHLORIDE
     Indication: Schizophrenia
     Dosage: 25 MG, 1X/DAY
     Route: 048
  3. HALOPERIDOL DECANOATE [Concomitant]
     Active Substance: HALOPERIDOL DECANOATE
     Indication: Schizophrenia
     Dosage: 200 MG, 1X/DAY
     Route: 048
  4. ARIPIPRAZOLE [Concomitant]
     Active Substance: ARIPIPRAZOLE
     Indication: Schizophrenia
     Dosage: 5 MG, 1X/DAY
     Route: 048
  5. TEGRETOL [Concomitant]
     Active Substance: CARBAMAZEPINE
     Indication: Schizophrenia

REACTIONS (1)
  - Linear IgA disease [Recovered/Resolved]

NARRATIVE: CASE EVENT DATE: 20220831
